FAERS Safety Report 8447801-0 (Version None)
Quarter: 2012Q2

REPORT INFORMATION
  Report Type: 
  Country: None (occurrence: None)
  Receive Date: 20120619
  Receipt Date: 20120608
  Transmission Date: 20120825
  Serious: Yes (Hospitalization)
  Sender: FDA-Public Use
  Company Number: US-BAYER-2012-019520

PATIENT
  Age: 46 Year
  Sex: Female
  Weight: 102.95 kg

DRUGS (23)
  1. FLUOXETINE [Concomitant]
     Indication: ANXIETY
  2. PLAVIX [Concomitant]
  3. NITROGLYCERIN [Concomitant]
  4. SERTRALINE HYDROCHLORIDE [Concomitant]
     Indication: ANXIETY
  5. LISINOPRIL [Concomitant]
  6. YASMIN [Suspect]
     Indication: ACNE
  7. CLINDAMYCIN [Concomitant]
     Dosage: 150 MG, UNK
  8. HYDROCODONE BITARTRATE + ACETAMINOPHEN [Concomitant]
     Dosage: 5-500 MG
  9. ALPRAZOLAM [Concomitant]
     Indication: ANXIETY
     Dosage: 0.5 MG, UNK
  10. YASMIN [Suspect]
     Indication: CONTRACEPTION
     Dosage: UNK
     Route: 048
     Dates: start: 20040201, end: 20080201
  11. SIMVASTATIN [Concomitant]
  12. VALIUM [Concomitant]
     Indication: SLEEP DISORDER THERAPY
  13. BUPROPION HCL [Concomitant]
     Indication: ANXIETY
  14. ASPIRIN [Concomitant]
     Dosage: 325 MG, UNK
  15. XANAX [Concomitant]
  16. YASMIN [Suspect]
     Indication: PREMENSTRUAL SYNDROME
  17. BUPROPION HCL [Concomitant]
     Dosage: 300 MG, UNK
  18. CARVEDILOL [Concomitant]
  19. FLEXERIL [Concomitant]
  20. SERTRALINE HYDROCHLORIDE [Concomitant]
     Indication: DEPRESSION
     Dosage: 100 MG, UNK
     Dates: start: 20070601
  21. BUPROPION HCL [Concomitant]
     Indication: DEPRESSION
     Dosage: UNK
     Dates: start: 20070801
  22. FLUOXETINE [Concomitant]
     Indication: DEPRESSION
     Dosage: UNK
     Dates: start: 20040201, end: 20070201
  23. MORPHINE [Concomitant]

REACTIONS (5)
  - PAIN [None]
  - MENTAL DISORDER [None]
  - ANXIETY [None]
  - MYOCARDIAL INFARCTION [None]
  - DEPRESSION [None]
